FAERS Safety Report 5221515-2 (Version None)
Quarter: 2007Q1

REPORT INFORMATION
  Report Type: 
  Country: None (occurrence: None)
  Receive Date: 20070126
  Receipt Date: 20070118
  Transmission Date: 20070707
  Serious: Yes (Other)
  Sender: FDA-Public Use
  Company Number: US-PFIZER INC-2007005607

PATIENT
  Sex: Female

DRUGS (1)
  1. GENOTROPIN [Suspect]
     Route: 058

REACTIONS (1)
  - ADIPOSIS DOLOROSA [None]
